FAERS Safety Report 9341406 (Version 1)
Quarter: 2013Q2

REPORT INFORMATION
  Report Type: Spontaneous
  Country: LK (occurrence: LK)
  Receive Date: 20130611
  Receipt Date: 20130611
  Transmission Date: 20140414
  Serious: Yes (Hospitalization)
  Sender: FDA-Public Use
  Company Number: LK-SUN PHARMACEUTICAL INDUSTRIES LTD-2013SUN00688

PATIENT
  Age: 6 Year
  Sex: Female
  Weight: 27 kg

DRUGS (1)
  1. VALPROIC ACID CAPSULES, USP 250 MG [Suspect]
     Indication: COMPLEX PARTIAL SEIZURES
     Dosage: 20 MG/KG, PER DAY FOR 3 WEEKS
     Route: 065

REACTIONS (10)
  - Posterior reversible encephalopathy syndrome [Recovering/Resolving]
  - Drug-induced liver injury [Recovering/Resolving]
  - Acute hepatic failure [None]
  - Hepatic encephalopathy [None]
  - Coma [Recovering/Resolving]
  - Vomiting [Recovering/Resolving]
  - Pyrexia [Recovering/Resolving]
  - Decreased appetite [Recovering/Resolving]
  - Rash erythematous [Recovering/Resolving]
  - Hypertension [Recovering/Resolving]
